FAERS Safety Report 12644411 (Version 2)
Quarter: 2018Q2

REPORT INFORMATION
  Report Type: Spontaneous
  Country: US (occurrence: US)
  Receive Date: 20160811
  Receipt Date: 20180425
  Transmission Date: 20180711
  Serious: Yes (Hospitalization, Other)
  Sender: FDA-Public Use
  Company Number: US-DSJP-DSU-2016-126811

PATIENT

DRUGS (4)
  1. BENICAR [Suspect]
     Active Substance: OLMESARTAN MEDOXOMIL
     Dosage: 40 MG, QD
     Dates: start: 20050119
  2. BENICAR [Suspect]
     Active Substance: OLMESARTAN MEDOXOMIL
     Indication: HYPERTENSION
     Dosage: 20 MG, QD
     Dates: start: 20020430
  3. ZOLOFT [Concomitant]
     Active Substance: SERTRALINE HYDROCHLORIDE
     Indication: ANXIETY
  4. ZOLOFT [Concomitant]
     Active Substance: SERTRALINE HYDROCHLORIDE
     Indication: DEPRESSION
     Dosage: 100 MG, QD

REACTIONS (11)
  - Intentional product use issue [Unknown]
  - Hospitalisation [Unknown]
  - Colitis ischaemic [Recovered/Resolved]
  - Incisional hernia [Unknown]
  - Crohn^s disease [Not Recovered/Not Resolved]
  - Dehydration [Unknown]
  - Anal fissure [Recovering/Resolving]
  - Nausea [Unknown]
  - Anal ulcer [Unknown]
  - Haemorrhoids [Not Recovered/Not Resolved]
  - Appendix disorder [Unknown]

NARRATIVE: CASE EVENT DATE: 20020430
